FAERS Safety Report 9136739 (Version 1)
Quarter: 2013Q1

REPORT INFORMATION
  Report Type: Spontaneous
  Country: US (occurrence: US)
  Receive Date: 20130304
  Receipt Date: 20130304
  Transmission Date: 20140127
  Serious: No
  Sender: FDA-Public Use
  Company Number: US-ABBOTT-12P-163-0991064-00

PATIENT
  Sex: Male
  Weight: 72.64 kg

DRUGS (2)
  1. ANDROGEL [Suspect]
     Indication: BLOOD TESTOSTERONE DECREASED
     Dosage: 1% PACKETS
     Dates: start: 2011, end: 2011
  2. ANDROGEL [Suspect]
     Indication: BLOOD TESTOSTERONE DECREASED
     Dosage: 2 PUMPS PER DAY, APPLIES TO ARMS AND SHOULDERS
     Dates: start: 2012

REACTIONS (6)
  - Drug ineffective [Unknown]
  - Drug ineffective [Unknown]
  - Blood testosterone decreased [Unknown]
  - Fatigue [Unknown]
  - Apathy [Unknown]
  - Inappropriate schedule of drug administration [Unknown]
